FAERS Safety Report 14587136 (Version 1)
Quarter: 2018Q1

REPORT INFORMATION
  Report Type: Spontaneous
  Country: FR (occurrence: FR)
  Receive Date: 20180301
  Receipt Date: 20180301
  Transmission Date: 20180509
  Serious: Yes (Hospitalization)
  Sender: FDA-Public Use
  Company Number: FR-AUROBINDO-AUR-APL-2018-010164

PATIENT
  Age: 14 Year
  Sex: Female

DRUGS (4)
  1. SPASFON                            /00765801/ [Suspect]
     Active Substance: PHLOROGLUCINOL\1,3,5-TRIMETHOXYBENZENE
     Indication: SUICIDE ATTEMPT
     Route: 048
     Dates: start: 20171108, end: 20171108
  2. SERESTA [Suspect]
     Active Substance: OXAZEPAM
     Indication: SUICIDE ATTEMPT
     Route: 048
     Dates: start: 20171108, end: 20171108
  3. SPIRAMYCINE [Suspect]
     Active Substance: SPIRAMYCIN
     Indication: SUICIDE ATTEMPT
     Route: 048
     Dates: start: 20171108, end: 20171108
  4. PARACETAMOL [Suspect]
     Active Substance: ACETAMINOPHEN
     Indication: SUICIDE ATTEMPT
     Dosage: ()
     Route: 048
     Dates: start: 20171108, end: 20171108

REACTIONS (1)
  - Somnolence [Recovered/Resolved]

NARRATIVE: CASE EVENT DATE: 20171108
